FAERS Safety Report 24213033 (Version 1)
Quarter: 2024Q3

REPORT INFORMATION
  Report Type: Other
  Country: TH (occurrence: TH)
  Receive Date: 20240815
  Receipt Date: 20240815
  Transmission Date: 20241016
  Serious: Yes (Life-Threatening)
  Sender: B BRAUN
  Company Number: TH-B.Braun Medical Inc.-2160483

PATIENT
  Age: 73 Year
  Sex: Male

DRUGS (2)
  1. DEXTROSE\LIDOCAINE HYDROCHLORIDE [Suspect]
     Active Substance: DEXTROSE\LIDOCAINE HYDROCHLORIDE
     Indication: Ventricular tachycardia
  2. AMIODARONE [Suspect]
     Active Substance: AMIODARONE

REACTIONS (1)
  - Drug ineffective [Unknown]
